FAERS Safety Report 7607452-4 (Version None)
Quarter: 2011Q3

REPORT INFORMATION
  Report Type: 
  Country: None (occurrence: None)
  Receive Date: 20110713
  Receipt Date: 20110705
  Transmission Date: 20111222
  Serious: Yes (Hospitalization)
  Sender: FDA-Public Use
  Company Number: CA-BAXTER-2011BH020219

PATIENT
  Sex: Female

DRUGS (5)
  1. EXTRANEAL [Suspect]
     Route: 033
     Dates: start: 20110217
  2. CIPROFLOXACIN [Concomitant]
     Indication: PRODUCT USED FOR UNKNOWN INDICATION
     Route: 065
     Dates: start: 20110601, end: 20110606
  3. EXTRANEAL [Suspect]
     Indication: PERITONEAL DIALYSIS
     Route: 033
     Dates: start: 20110217
  4. DIANEAL [Suspect]
     Route: 033
     Dates: start: 20110217
  5. DIANEAL [Suspect]
     Indication: PERITONEAL DIALYSIS
     Route: 033
     Dates: start: 20110217

REACTIONS (4)
  - HEADACHE [None]
  - PERITONITIS BACTERIAL [None]
  - INFECTION [None]
  - ABDOMINAL PAIN [None]
